FAERS Safety Report 8988428 (Version 1)
Quarter: 2012Q4

REPORT INFORMATION
  Report Type: Spontaneous
  Country: US (occurrence: None)
  Receive Date: 20121221
  Receipt Date: 20121221
  Transmission Date: 20130627
  Serious: No
  Sender: FDA-Public Use
  Company Number: None

PATIENT
  Age: 60 Year
  Sex: Female
  Weight: 85.28 kg

DRUGS (1)
  1. AMLODIPINE BESILATE, BENAZEPRIL HCL [Suspect]
     Indication: BLOOD PRESSURE HIGH
     Dosage: one capsule  everyday
     Dates: start: 20110922, end: 20121222

REACTIONS (3)
  - Product tampering [None]
  - Capsule physical issue [None]
  - Product quality issue [None]
